FAERS Safety Report 21940321 (Version 1)
Quarter: 2023Q1

REPORT INFORMATION
  Report Type: Report from Study
  Country: US (occurrence: US)
  Receive Date: 20230201
  Receipt Date: 20230201
  Transmission Date: 20230417
  Serious: No
  Sender: FDA-Public Use
  Company Number: US-EXELIXIS-CABO-22050564

PATIENT
  Age: 74 Year
  Sex: Male
  Weight: 84.785 kg

DRUGS (3)
  1. CABOMETYX [Suspect]
     Active Substance: CABOZANTINIB S-MALATE
     Indication: Renal cancer
     Dosage: 60 MG, QD
     Route: 048
     Dates: start: 20220315
  2. CABOMETYX [Suspect]
     Active Substance: CABOZANTINIB S-MALATE
     Dosage: 40 MG, QD
     Route: 048
     Dates: start: 202205
  3. CABOMETYX [Suspect]
     Active Substance: CABOZANTINIB S-MALATE
     Dosage: 40 MG, QD
     Route: 048

REACTIONS (9)
  - Glossitis [Unknown]
  - Oral pain [Unknown]
  - Skin ulcer [Unknown]
  - Blood pressure decreased [Unknown]
  - Blood pressure increased [Recovered/Resolved]
  - Asthenia [Unknown]
  - Stomatitis [Not Recovered/Not Resolved]
  - Dysgeusia [Unknown]
  - Cardiac disorder [Unknown]

NARRATIVE: CASE EVENT DATE: 20220301
